FAERS Safety Report 11244528 (Version 1)
Quarter: 2015Q3

REPORT INFORMATION
  Report Type: Report from Study
  Country: FR (occurrence: FR)
  Receive Date: 20150707
  Receipt Date: 20150707
  Transmission Date: 20151125
  Serious: Yes (Hospitalization, Other)
  Sender: FDA-Public Use
  Company Number: FR-GLAXOSMITHKLINE-FR2015GSK096802

PATIENT

DRUGS (10)
  1. BURINEX [Concomitant]
     Active Substance: BUMETANIDE
  2. TRIATEC [Concomitant]
     Active Substance: RAMIPRIL
  3. PREVISCAN (NOS) [Concomitant]
  4. INSPRA [Concomitant]
     Active Substance: EPLERENONE
  5. PLAVIX [Concomitant]
     Active Substance: CLOPIDOGREL BISULFATE
  6. OMEGA-3-ACID ETHYL ESTERS. [Suspect]
     Active Substance: OMEGA-3-ACID ETHYL ESTERS
     Indication: ISCHAEMIC HEART DISEASE PROPHYLAXIS
     Dosage: UNK
     Dates: start: 20081209, end: 20130222
  7. TAHOR [Concomitant]
     Active Substance: ATORVASTATIN CALCIUM
  8. CRESTOR [Concomitant]
     Active Substance: ROSUVASTATIN CALCIUM
  9. CARDENSIEL [Concomitant]
     Active Substance: BISOPROLOL FUMARATE
  10. KARDEGIC [Concomitant]
     Active Substance: ASPIRIN LYSINE

REACTIONS (1)
  - Hypovolaemic shock [Unknown]

NARRATIVE: CASE EVENT DATE: 20090430
